FAERS Safety Report 5768066-4 (Version None)
Quarter: 2008Q2

REPORT INFORMATION
  Report Type: 
  Country: None (occurrence: None)
  Receive Date: 20080612
  Receipt Date: 20080605
  Transmission Date: 20081010
  Serious: Yes (Life-Threatening, Hospitalization, Other)
  Sender: FDA-Public Use
  Company Number: US-ABBOTT-08P-163-0455812-00

PATIENT
  Sex: Male
  Weight: 130.3 kg

DRUGS (7)
  1. SYNTHROID [Suspect]
     Indication: HYPOTHYROIDISM
     Route: 048
  2. SYNTHROID [Suspect]
     Route: 048
     Dates: start: 20010701
  3. LEVOTHYROXINE SODIUM [Suspect]
     Indication: HYPOTHYROIDISM
     Route: 048
     Dates: start: 20010701, end: 20010701
  4. CARVEDILOL [Suspect]
     Indication: CARDIOMYOPATHY
     Route: 048
  5. CARVEDILOL [Suspect]
     Indication: HYPERTENSION
     Route: 048
     Dates: start: 20080501
  6. LOSARTAN POTASSIUM [Concomitant]
     Indication: CARDIOMYOPATHY
     Route: 048
  7. SPIRONOLACTONE [Concomitant]
     Indication: CARDIOMYOPATHY
     Route: 048

REACTIONS (5)
  - CARDIOMYOPATHY [None]
  - DYSPNOEA [None]
  - MEDICATION ERROR [None]
  - PULMONARY EMBOLISM [None]
  - UNDERDOSE [None]
